FAERS Safety Report 8384297-1 (Version None)
Quarter: 2012Q2

REPORT INFORMATION
  Report Type: 
  Country: None (occurrence: None)
  Receive Date: 20120524
  Receipt Date: 20120519
  Transmission Date: 20120825
  Serious: Yes (Hospitalization)
  Sender: FDA-Public Use
  Company Number: PHEH2012US010475

PATIENT
  Sex: Male

DRUGS (2)
  1. DIOVAN [Suspect]
     Dosage: 80 MG, BID
  2. DIOVAN [Suspect]
     Dosage: 40 MG, BID

REACTIONS (2)
  - PULMONARY THROMBOSIS [None]
  - MYOCARDIAL INFARCTION [None]
